FAERS Safety Report 25669881 (Version 1)
Quarter: 2025Q3

REPORT INFORMATION
  Report Type: Spontaneous
  Country: GB (occurrence: GB)
  Receive Date: 20250812
  Receipt Date: 20250812
  Transmission Date: 20251021
  Serious: Yes (Life-Threatening)
  Sender: GUERBET
  Company Number: GB-GUERBET / GUERBET LABORATORIES-GB-20250157

PATIENT
  Age: 41 Year
  Sex: Male

DRUGS (1)
  1. OPTIRAY 350 [Suspect]
     Active Substance: IOVERSOL
     Indication: Computerised tomogram abdomen
     Dosage: 10:40 AM APPROXIMATELY
     Route: 042
     Dates: start: 20250709, end: 20250709

REACTIONS (7)
  - Contrast media reaction [Recovered/Resolved]
  - Loss of consciousness [Recovered/Resolved]
  - Tongue oedema [Recovered/Resolved]
  - Rash [Recovered/Resolved]
  - Dyspnoea [Recovered/Resolved]
  - Wheezing [Recovered/Resolved]
  - Face oedema [Recovered/Resolved]

NARRATIVE: CASE EVENT DATE: 20250709
